FAERS Safety Report 6239117-8 (Version None)
Quarter: 2009Q2

REPORT INFORMATION
  Report Type: 
  Country: None (occurrence: None)
  Receive Date: 20090622
  Receipt Date: 20090611
  Transmission Date: 20091009
  Serious: Yes (Death, Hospitalization)
  Sender: FDA-Public Use
  Company Number: SA-JNJFOC-20090605024

PATIENT
  Age: 66 Year
  Sex: Female

DRUGS (3)
  1. INFLIXIMAB [Suspect]
     Route: 042
  2. INFLIXIMAB [Suspect]
     Indication: PSORIASIS
     Route: 042
  3. ALEFACEPT [Suspect]
     Indication: PSORIASIS
     Route: 030

REACTIONS (1)
  - NOCARDIOSIS [None]
